FAERS Safety Report 15500780 (Version 3)
Quarter: 2018Q4

REPORT INFORMATION
  Report Type: Report from Study
  Country: FR (occurrence: FR)
  Receive Date: 20181015
  Receipt Date: 20181101
  Transmission Date: 20190205
  Serious: Yes (Hospitalization, Other)
  Sender: FDA-Public Use
  Company Number: FR-PFIZER INC-2016023242

PATIENT
  Age: 55 Year
  Sex: Male
  Weight: 74 kg

DRUGS (9)
  1. DEXERYL [GLYCEROL;PARAFFIN, LIQUID;WHITE SOFT PARAFFIN] [Concomitant]
     Dosage: UNK
     Dates: start: 20130318
  2. METHOTREXATE SODIUM. [Suspect]
     Active Substance: METHOTREXATE SODIUM
     Indication: PSORIASIS
     Dosage: 15 MG, WEEKLY
     Route: 048
     Dates: start: 20150528, end: 20150910
  3. STELARA [Suspect]
     Active Substance: USTEKINUMAB
     Dosage: 45 MG, EVERY 12 WEEKS
     Route: 058
     Dates: start: 20100519, end: 20130119
  4. HUMIRA [Suspect]
     Active Substance: ADALIMUMAB
     Indication: PSORIASIS
     Dosage: 80 MG ONCE WEEKLY
     Route: 058
     Dates: start: 20130318, end: 20130325
  5. HUMIRA [Suspect]
     Active Substance: ADALIMUMAB
     Dosage: 40 EVERY 2 WEEKS
     Route: 058
     Dates: start: 20130325, end: 20150325
  6. ENBREL [Suspect]
     Active Substance: ETANERCEPT
     Dosage: 50 MG, WEEKLY
     Route: 058
     Dates: start: 20150828, end: 20150910
  7. ENBREL [Suspect]
     Active Substance: ETANERCEPT
     Indication: PSORIASIS
     Dosage: 50 MG, 2X/WEEK
     Route: 058
     Dates: start: 20150528, end: 20150828
  8. STELARA [Suspect]
     Active Substance: USTEKINUMAB
     Indication: PSORIASIS
     Dosage: 45 MG, EVERY 4 WEEKS (AT M0 AND M1)
     Route: 058
     Dates: start: 20100419, end: 20100519
  9. DAIVOBET [Concomitant]
     Active Substance: BETAMETHASONE DIPROPIONATE\CALCIPOTRIENE
     Dosage: UNK
     Dates: start: 20130318

REACTIONS (2)
  - Colorectal cancer [Recovered/Resolved]
  - Colon cancer stage II [Recovered/Resolved]

NARRATIVE: CASE EVENT DATE: 201509
